FAERS Safety Report 11939370 (Version 3)
Quarter: 2016Q2

REPORT INFORMATION
  Report Type: Report from Study
  Country: ES (occurrence: ES)
  Receive Date: 20160122
  Receipt Date: 20160404
  Transmission Date: 20160815
  Serious: Yes (Other)
  Sender: FDA-Public Use
  Company Number: ES-PFIZER INC-2016019683

PATIENT
  Age: 70 Year
  Sex: Female

DRUGS (10)
  1. PRAVASTATIN [Concomitant]
     Active Substance: PRAVASTATIN\PRAVASTATIN SODIUM
     Dosage: UNK, 1X/DAY
  2. PARACETAMOL [Concomitant]
     Active Substance: ACETAMINOPHEN
  3. METAMIZOLE [Concomitant]
     Active Substance: METAMIZOLE
  4. PROFER /00023527/ [Concomitant]
  5. XALKORI [Suspect]
     Active Substance: CRIZOTINIB
     Indication: NON-SMALL CELL LUNG CANCER
     Dosage: 250 MG, 2X/DAY
     Route: 048
     Dates: start: 20150623
  6. AAS [Concomitant]
     Active Substance: ASPIRIN
     Dosage: 100 (UNKNOWN UNITS), 1X/DAY
  7. LETROZOLE. [Concomitant]
     Active Substance: LETROZOLE
  8. MONOPROST [Concomitant]
     Active Substance: LATANOPROST
  9. LOSARTAN. [Concomitant]
     Active Substance: LOSARTAN
     Dosage: UNK, 1X/DAY
  10. EUTIROX [Concomitant]
     Active Substance: LEVOTHYROXINE SODIUM
     Dosage: UNK, 1X/DAY

REACTIONS (1)
  - Renal cyst haemorrhage [Recovering/Resolving]
